FAERS Safety Report 20317626 (Version 1)
Quarter: 2022Q1

REPORT INFORMATION
  Report Type: Spontaneous
  Country: CA (occurrence: CA)
  Receive Date: 20220110
  Receipt Date: 20220110
  Transmission Date: 20220423
  Serious: Yes (Other)
  Sender: FDA-Public Use
  Company Number: CA-TEVA-2021-CA-1996548

PATIENT
  Age: 40 Year
  Sex: Female

DRUGS (1)
  1. METHYLPREDNISOLONE [Suspect]
     Active Substance: METHYLPREDNISOLONE
     Indication: Optic neuritis
     Route: 042

REACTIONS (5)
  - Cough [Unknown]
  - Dyspnoea [Unknown]
  - Urticaria [Unknown]
  - Wheezing [Unknown]
  - Off label use [Unknown]
